FAERS Safety Report 17673092 (Version 2)
Quarter: 2020Q2

REPORT INFORMATION
  Report Type: Report from Study
  Country: IT (occurrence: IT)
  Receive Date: 20200415
  Receipt Date: 20200421
  Transmission Date: 20200713
  Serious: Yes (Death)
  Sender: FDA-Public Use
  Company Number: IT-PFIZER INC-2020154494

PATIENT
  Age: 52 Year

DRUGS (1)
  1. PF-06463922 [Suspect]
     Active Substance: LORLATINIB
     Dosage: UNK
     Dates: end: 201905

REACTIONS (1)
  - Death [Fatal]

NARRATIVE: CASE EVENT DATE: 20200209
